FAERS Safety Report 17463471 (Version 2)
Quarter: 2020Q2

REPORT INFORMATION
  Report Type: Spontaneous
  Country: SK (occurrence: SK)
  Receive Date: 20200226
  Receipt Date: 20200406
  Transmission Date: 20200713
  Serious: Yes (Other)
  Sender: FDA-Public Use
  Company Number: NVSC2020SK026145

PATIENT
  Age: 72 Year
  Sex: Female
  Weight: 70 kg

DRUGS (7)
  1. METAMIZOLE [Interacting]
     Active Substance: METAMIZOLE
     Indication: ANALGESIC THERAPY
  2. TRIMECAINE HYDROCHLORIDE [Concomitant]
     Indication: PANCYTOPENIA
     Dosage: 10 MG, TID
     Route: 065
  3. ZARZIO [Suspect]
     Active Substance: FILGRASTIM
     Indication: PANCYTOPENIA
     Dosage: 48 UNK(MU SC 1X DAILY THREE DOSES)
     Route: 058
  4. THIETHYLPERAZINE [Concomitant]
     Active Substance: THIETHYLPERAZINE
     Indication: PANCYTOPENIA
     Dosage: 6.5 MG, TID
     Route: 065
  5. PITOFENONE [Concomitant]
     Active Substance: PITOFENONE
     Indication: PANCYTOPENIA
     Dosage: 10 MG, TID
     Route: 065
  6. FENPIVERINIUM [Concomitant]
     Indication: PANCYTOPENIA
     Dosage: 0.1 MG, TID
     Route: 065
  7. METAMIZOLE [Interacting]
     Active Substance: METAMIZOLE
     Indication: PANCYTOPENIA
     Dosage: 2500 MG, TID
     Route: 065

REACTIONS (3)
  - Drug interaction [Recovered/Resolved]
  - Therapeutic product effect decreased [Recovered/Resolved]
  - Drug ineffective [Unknown]
